FAERS Safety Report 23097893 (Version 1)
Quarter: 2023Q4

REPORT INFORMATION
  Report Type: Spontaneous
  Country: JP (occurrence: JP)
  Receive Date: 20231023
  Receipt Date: 20231023
  Transmission Date: 20240110
  Serious: Yes (Hospitalization, Other)
  Sender: FDA-Public Use
  Company Number: JP-GLAXOSMITHKLINE-JP2018JPN144948

PATIENT

DRUGS (47)
  1. AMBISOME [Suspect]
     Active Substance: AMPHOTERICIN B
     Indication: Systemic mycosis
     Dosage: 150 MG
     Route: 065
     Dates: start: 20181020, end: 20181106
  2. AMBISOME [Suspect]
     Active Substance: AMPHOTERICIN B
     Indication: Chromoblastomycosis
  3. BELIMUMAB [Suspect]
     Active Substance: BELIMUMAB
     Indication: Systemic lupus erythematosus
     Dosage: 1 DF, BIW
     Route: 041
     Dates: start: 20180119, end: 20180216
  4. BELIMUMAB [Suspect]
     Active Substance: BELIMUMAB
     Dosage: 1 DF, QID
     Route: 041
     Dates: start: 20180330, end: 20180817
  5. BELIMUMAB [Suspect]
     Active Substance: BELIMUMAB
     Indication: Chromoblastomycosis
     Dosage: UNK
     Route: 041
     Dates: start: 20180308
  6. MICAFUNGIN SODIUM [Suspect]
     Active Substance: MICAFUNGIN SODIUM
     Indication: Systemic mycosis
     Dosage: 150 MG, QD
     Route: 065
     Dates: start: 20181005
  7. MICAFUNGIN SODIUM [Suspect]
     Active Substance: MICAFUNGIN SODIUM
     Indication: Chromoblastomycosis
     Dosage: 200 MG, QD
     Route: 065
     Dates: start: 20181013
  8. MICAFUNGIN SODIUM [Suspect]
     Active Substance: MICAFUNGIN SODIUM
     Dosage: 250 MG, QD
     Route: 065
     Dates: start: 20181015
  9. MICAFUNGIN SODIUM [Suspect]
     Active Substance: MICAFUNGIN SODIUM
     Dosage: 300 MG, QD
     Route: 065
     Dates: start: 20181018, end: 20181106
  10. ITRACONAZOLE [Suspect]
     Active Substance: ITRACONAZOLE
     Indication: Chromoblastomycosis
     Dosage: 100 MG, QD
     Route: 065
     Dates: start: 20180731, end: 20180929
  11. ITRACONAZOLE [Suspect]
     Active Substance: ITRACONAZOLE
     Indication: Systemic mycosis
     Dosage: 200 MG, QD
     Route: 065
     Dates: start: 20180914, end: 20180927
  12. LAMISIL [Suspect]
     Active Substance: TERBINAFINE HYDROCHLORIDE
     Indication: Product used for unknown indication
     Dosage: 1 DF
     Route: 065
     Dates: start: 20180927
  13. LAMISIL [Suspect]
     Active Substance: TERBINAFINE HYDROCHLORIDE
     Dosage: 250 MG, QD
     Route: 065
     Dates: start: 20181002, end: 20181005
  14. PREDNISOLONE [Suspect]
     Active Substance: PREDNISOLONE
     Dosage: 14 MG, QD
     Route: 048
     Dates: start: 20181114
  15. PREDNISOLONE [Suspect]
     Active Substance: PREDNISOLONE
     Dosage: 15 MG, QD
     Route: 048
     Dates: start: 20181103, end: 20181113
  16. PREDNISOLONE [Suspect]
     Active Substance: PREDNISOLONE
     Dosage: 16 MG, QD
     Route: 048
     Dates: start: 20181027, end: 20181102
  17. PREDNISOLONE [Suspect]
     Active Substance: PREDNISOLONE
     Dosage: 17 MG, QD
     Route: 048
     Dates: start: 20181020, end: 20181026
  18. PREDNISOLONE [Suspect]
     Active Substance: PREDNISOLONE
     Dosage: 18 MG, QD
     Route: 048
     Dates: start: 20181014, end: 20181019
  19. PREDNISOLONE [Suspect]
     Active Substance: PREDNISOLONE
     Dosage: 19 MG, QD
     Route: 048
     Dates: start: 20181011, end: 20181013
  20. PREDNISOLONE [Suspect]
     Active Substance: PREDNISOLONE
     Dosage: 20 MG, QD
     Route: 048
     Dates: start: 20181008, end: 20181010
  21. PREDNISOLONE [Suspect]
     Active Substance: PREDNISOLONE
     Dosage: 21 MG, QD
     Route: 048
     Dates: start: 20181005, end: 20181007
  22. PREDNISOLONE [Suspect]
     Active Substance: PREDNISOLONE
     Dosage: 22 MG, QD
     Route: 048
     Dates: start: 20181001, end: 20181004
  23. PREDNISOLONE [Suspect]
     Active Substance: PREDNISOLONE
     Dosage: 22.5 MG, QD
     Route: 048
     Dates: start: 20180622, end: 20180816
  24. PREDNISOLONE [Suspect]
     Active Substance: PREDNISOLONE
     Dosage: 23 MG, QD
     Route: 048
     Dates: start: 20180525, end: 20180621
  25. PREDNISOLONE [Suspect]
     Active Substance: PREDNISOLONE
     Dosage: 23 MG, QD
     Route: 048
     Dates: start: 20180817, end: 20180930
  26. PREDNISOLONE [Suspect]
     Active Substance: PREDNISOLONE
     Dosage: 24 MG, QD
     Route: 048
     Dates: start: 20180330, end: 20180524
  27. PREDNISOLONE [Suspect]
     Active Substance: PREDNISOLONE
     Dosage: 25 MG, QD
     Route: 065
     Dates: start: 20180123, end: 20180201
  28. PREDNISOLONE [Suspect]
     Active Substance: PREDNISOLONE
     Dosage: 26 MG, QD
     Route: 048
     Dates: start: 20180316, end: 20180329
  29. PREDNISOLONE [Suspect]
     Active Substance: PREDNISOLONE
     Dosage: 28 MG, QD
     Route: 048
     Dates: start: 20180223, end: 20180315
  30. PREDNISOLONE [Suspect]
     Active Substance: PREDNISOLONE
     Indication: Systemic lupus erythematosus
     Dosage: 30 MG, QD
     Route: 048
     Dates: start: 20180119, end: 20180122
  31. PREDNISOLONE [Suspect]
     Active Substance: PREDNISOLONE
     Dosage: 30 MG, QD
     Route: 048
     Dates: start: 20180202, end: 20180222
  32. RHEUMATREX [Suspect]
     Active Substance: METHOTREXATE SODIUM
     Indication: Systemic lupus erythematosus
     Dosage: UNK
     Route: 048
  33. SULFAMETHOXAZOLE\TRIMETHOPRIM [Concomitant]
     Active Substance: SULFAMETHOXAZOLE\TRIMETHOPRIM
     Indication: Product used for unknown indication
     Route: 065
  34. SULFAMETHOXAZOLE\TRIMETHOPRIM [Concomitant]
     Active Substance: SULFAMETHOXAZOLE\TRIMETHOPRIM
     Indication: Product used for unknown indication
     Route: 065
  35. Basen [Concomitant]
     Indication: Product used for unknown indication
     Dosage: UNK
     Route: 065
  36. BONALON [Concomitant]
     Active Substance: ALENDRONATE SODIUM
     Indication: Product used for unknown indication
     Dosage: UNK
     Route: 065
  37. ELDECALCITOL [Concomitant]
     Active Substance: ELDECALCITOL
     Indication: Product used for unknown indication
     Dosage: UNK
     Route: 065
  38. SODIUM FERROUS CITRATE [Concomitant]
     Active Substance: SODIUM FERROUS CITRATE
     Indication: Product used for unknown indication
     Dosage: UNK
     Route: 065
  39. FOLIC ACID [Concomitant]
     Active Substance: FOLIC ACID
     Indication: Prophylaxis
     Dosage: UNK
     Route: 065
  40. FOLIC ACID [Concomitant]
     Active Substance: FOLIC ACID
     Indication: Systemic lupus erythematosus
  41. INFLUENZA HA [Concomitant]
     Indication: Prophylaxis
     Dosage: UNK
     Route: 065
     Dates: start: 20181116
  42. INFLUENZA HA [Concomitant]
     Indication: Product used for unknown indication
  43. BROTIZOLAM [Concomitant]
     Active Substance: BROTIZOLAM
     Indication: Product used for unknown indication
     Dosage: UNK
     Route: 065
  44. LOXOPROFEN SODIUM [Concomitant]
     Active Substance: LOXOPROFEN SODIUM
     Indication: Systemic lupus erythematosus
     Dosage: UNK
     Route: 065
  45. LOXOPROFEN SODIUM [Concomitant]
     Active Substance: LOXOPROFEN SODIUM
     Indication: Chromoblastomycosis
  46. PLAQUENIL [Concomitant]
     Active Substance: HYDROXYCHLOROQUINE SULFATE
     Indication: Systemic lupus erythematosus
     Dosage: UNK
     Route: 065
  47. LANSOPRAZOLE [Concomitant]
     Active Substance: LANSOPRAZOLE
     Indication: Prophylaxis against gastrointestinal ulcer
     Dosage: UNK
     Route: 065

REACTIONS (7)
  - Systemic mycosis [Recovered/Resolved]
  - Chromoblastomycosis [Not Recovered/Not Resolved]
  - Upper respiratory tract inflammation [Recovered/Resolved]
  - Upper respiratory tract inflammation [Recovered/Resolved]
  - Liver disorder [Recovered/Resolved]
  - Inappropriate schedule of product administration [Unknown]
  - Off label use [Unknown]

NARRATIVE: CASE EVENT DATE: 20180202
